FAERS Safety Report 5609098-6 (Version None)
Quarter: 2008Q1

REPORT INFORMATION
  Report Type: 
  Country: None (occurrence: None)
  Receive Date: 20080131
  Receipt Date: 20080125
  Transmission Date: 20080703
  Serious: Yes (Hospitalization, Other)
  Sender: FDA-Public Use
  Company Number: GR-JNJFOC-20071205950

PATIENT
  Sex: Male
  Weight: 63 kg

DRUGS (2)
  1. BLINDED; INFLIXIMAB, RECOMBINANT [Suspect]
     Indication: DIABETIC RETINAL OEDEMA
     Route: 042
  2. PLACEBO [Suspect]
     Indication: DIABETIC RETINAL OEDEMA
     Route: 042

REACTIONS (1)
  - BREAST CANCER [None]
